FAERS Safety Report 6282525-X (Version None)
Quarter: 2009Q3

REPORT INFORMATION
  Report Type: 
  Country: None (occurrence: None)
  Receive Date: 20090724
  Receipt Date: 20090714
  Transmission Date: 20100115
  Serious: Yes (Hospitalization)
  Sender: FDA-Public Use
  Company Number: SE-NOVOPROD-288920

PATIENT
  Sex: Male

DRUGS (1)
  1. ACTRAPID PENFILL [Suspect]
     Indication: DIABETES MELLITUS

REACTIONS (2)
  - PRODUCT QUALITY ISSUE [None]
  - PULMONARY OEDEMA [None]
